FAERS Safety Report 9046280 (Version 1)
Quarter: 2013Q1

REPORT INFORMATION
  Report Type: Spontaneous
  Country: GB (occurrence: GB)
  Receive Date: 20130201
  Receipt Date: 20130201
  Transmission Date: 20140127
  Serious: Yes (Other)
  Sender: FDA-Public Use
  Company Number: GB-JNJFOC-20130113589

PATIENT
  Age: 86 Year
  Sex: Male
  Weight: 52.3 kg

DRUGS (9)
  1. XARELTO [Suspect]
     Indication: THROMBOSIS
     Route: 048
  2. XARELTO [Suspect]
     Indication: THROMBOSIS
     Route: 048
     Dates: start: 20121210
  3. ASPIRIN [Concomitant]
     Route: 065
  4. FERROUS FUMARATE [Concomitant]
     Route: 065
  5. FORTISIP [Concomitant]
     Route: 065
  6. FUROSEMIDE [Concomitant]
     Route: 065
  7. LEVOTHYROXINE [Concomitant]
     Route: 065
  8. BETNOVATE [Concomitant]
     Route: 065
  9. ENOXAPARIN [Concomitant]
     Route: 065

REACTIONS (5)
  - Anaemia [Unknown]
  - Fall [Unknown]
  - Red blood cell count decreased [Unknown]
  - Haematocrit decreased [Unknown]
  - Haemoglobin decreased [Unknown]
